FAERS Safety Report 7416611-5 (Version None)
Quarter: 2011Q2

REPORT INFORMATION
  Report Type: 
  Country: None (occurrence: None)
  Receive Date: 20110415
  Receipt Date: 20110405
  Transmission Date: 20111010
  Serious: Yes (Hospitalization)
  Sender: FDA-Public Use
  Company Number: US-BIOGENIDEC-2011BI010836

PATIENT
  Age: 55 Year
  Sex: Male
  Weight: 102 kg

DRUGS (14)
  1. AVONEX [Suspect]
     Indication: MULTIPLE SCLEROSIS
     Route: 030
     Dates: start: 20100101
  2. NEURONTIN [Concomitant]
     Route: 048
  3. ASPIRIN [Concomitant]
     Route: 048
  4. VALIUM [Concomitant]
     Route: 048
  5. IMDUR [Concomitant]
     Route: 048
  6. GLUCOPHAGE [Concomitant]
     Route: 048
  7. INSULIN GLARGINE [Concomitant]
     Indication: DIABETES MELLITUS
     Route: 058
  8. INSULIN ASPART [Concomitant]
     Indication: DIABETES MELLITUS
     Route: 058
  9. ZOCOR [Concomitant]
     Route: 048
  10. NORCO [Concomitant]
     Route: 048
  11. PEPCID [Concomitant]
     Route: 048
  12. BACLOFEN [Concomitant]
     Route: 048
  13. LIDODERM [Concomitant]
     Route: 062
  14. COREG [Concomitant]
     Route: 048

REACTIONS (4)
  - CHEST PAIN [None]
  - CORONARY ARTERY DISEASE [None]
  - HYPERGLYCAEMIA [None]
  - ATRIAL FIBRILLATION [None]
